FAERS Safety Report 10039396 (Version 1)
Quarter: 2014Q1

REPORT INFORMATION
  Report Type: Spontaneous
  Country: US (occurrence: None)
  Receive Date: 20140318
  Receipt Date: 20140318
  Transmission Date: 20141002
  Serious: Yes (Other)
  Sender: FDA-Public Use
  Company Number: 2014CT000017

PATIENT
  Age: 63 Year
  Sex: Female
  Weight: 68.04 kg

DRUGS (3)
  1. KORLYM [Suspect]
     Indication: OVARIAN CANCER
     Route: 048
     Dates: start: 201402
  2. ATIVAN [Concomitant]
  3. IBUPROFEN [Concomitant]

REACTIONS (4)
  - Nausea [None]
  - Vomiting [None]
  - Drug intolerance [None]
  - Off label use [None]
